FAERS Safety Report 4799427-8 (Version None)
Quarter: 2005Q4

REPORT INFORMATION
  Report Type: 
  Country: None (occurrence: None)
  Receive Date: 20051013
  Receipt Date: 20050928
  Transmission Date: 20060501
  Serious: Yes (Disabling)
  Sender: FDA-Public Use
  Company Number: 2005005140

PATIENT
  Age: 13 Year
  Sex: Female
  Weight: 32 kg

DRUGS (2)
  1. GENOTROPIN [Suspect]
     Indication: HYPOPITUITARISM
     Dosage: SEE IMAGE
     Route: 058
     Dates: start: 20011001, end: 20040206
  2. GENOTROPIN [Suspect]
     Indication: HYPOPITUITARISM
     Dosage: SEE IMAGE
     Route: 058
     Dates: start: 20050929

REACTIONS (5)
  - EYELID PTOSIS [None]
  - MENINGIOMA [None]
  - NEUROFIBROMATOSIS [None]
  - OPTIC NERVE GLIOMA [None]
  - OPTIC NERVE NEOPLASM [None]
